FAERS Safety Report 24063754 (Version 7)
Quarter: 2025Q2

REPORT INFORMATION
  Report Type: Spontaneous
  Country: US (occurrence: US)
  Receive Date: 20240709
  Receipt Date: 20250419
  Transmission Date: 20250717
  Serious: Yes (Other)
  Sender: SANOFI AVENTIS
  Company Number: US-SA-SAC20240704000128

PATIENT
  Age: 55 Year
  Sex: Female

DRUGS (9)
  1. DUPIXENT [Suspect]
     Active Substance: DUPILUMAB
     Indication: Dermatitis contact
     Dosage: 300 MG, QOW
     Route: 058
     Dates: start: 202307
  2. LEVOTHYROXINE SODIUM [Concomitant]
     Active Substance: LEVOTHYROXINE SODIUM
  3. MELOXICAM [Concomitant]
     Active Substance: MELOXICAM
  4. MAXZIDE [Concomitant]
     Active Substance: HYDROCHLOROTHIAZIDE\TRIAMTERENE
  5. OZEMPIC [Concomitant]
     Active Substance: SEMAGLUTIDE
  6. DOXYCYCLINE [Concomitant]
     Active Substance: DOXYCYCLINE
  7. GABAPENTIN [Concomitant]
     Active Substance: GABAPENTIN
  8. SIMVASTATIN [Concomitant]
     Active Substance: SIMVASTATIN
  9. RISPERIDONE [Concomitant]
     Active Substance: RISPERIDONE

REACTIONS (12)
  - Abdominal operation [Unknown]
  - Arthropod-borne disease [Unknown]
  - Arthropod bite [Unknown]
  - Rash [Unknown]
  - Infection [Unknown]
  - Injection site bruising [Unknown]
  - Dermatitis contact [Unknown]
  - Rebound effect [Unknown]
  - Post procedural infection [Unknown]
  - Surgery [Unknown]
  - Product use in unapproved indication [Unknown]
  - Therapeutic response decreased [Unknown]

NARRATIVE: CASE EVENT DATE: 20230701
